FAERS Safety Report 6718770-6 (Version None)
Quarter: 2010Q2

REPORT INFORMATION
  Report Type: 
  Country: None (occurrence: None)
  Receive Date: 20100511
  Receipt Date: 20100430
  Transmission Date: 20101027
  Serious: Yes (Hospitalization, Other)
  Sender: FDA-Public Use
  Company Number: US-BIOGENIDEC-2009BI014030

PATIENT
  Age: 35 Year
  Sex: Female
  Weight: 108 kg

DRUGS (9)
  1. TYSABRI [Suspect]
     Indication: MULTIPLE SCLEROSIS
     Route: 042
     Dates: start: 20070725, end: 20090506
  2. DIAZEPAM [Concomitant]
     Indication: MUSCLE SPASMS
  3. VICODIN [Concomitant]
  4. RAMIPRIL [Concomitant]
  5. BACLOFEN [Concomitant]
  6. NEURONTIN [Concomitant]
  7. PROZAC [Concomitant]
  8. AMITRIPTYLINE HCL [Concomitant]
  9. OMEPRAZOLE [Concomitant]

REACTIONS (5)
  - DEPRESSION [None]
  - IMMUNE RECONSTITUTION SYNDROME [None]
  - LYMPHOCYTOSIS [None]
  - PROGRESSIVE MULTIFOCAL LEUKOENCEPHALOPATHY [None]
  - SUICIDE ATTEMPT [None]
